FAERS Safety Report 8105629-5 (Version None)
Quarter: 2012Q1

REPORT INFORMATION
  Report Type: 
  Country: None (occurrence: None)
  Receive Date: 20120201
  Receipt Date: 20120124
  Transmission Date: 20120608
  Serious: Yes (Hospitalization)
  Sender: FDA-Public Use
  Company Number: DE-ROCHE-1033089

PATIENT
  Sex: Male
  Weight: 76 kg

DRUGS (4)
  1. AVASTIN [Suspect]
     Indication: COLORECTAL CANCER METASTATIC
     Dosage: LAST DOSE PRIOR TO SAE 04/JAN/2012
     Route: 042
     Dates: start: 20120104
  2. LEUCOVORIN CALCIUM [Suspect]
     Indication: COLORECTAL CANCER METASTATIC
     Dosage: 2 X 394MG, LAST DOSE PRIOR TO SAE 05/JAN/2012
     Route: 042
     Dates: start: 20120104
  3. FLUOROURACIL [Suspect]
     Indication: COLORECTAL CANCER METASTATIC
     Dosage: 2X 1182MG LAST DOSE PRIOR TO SAE 05/JAN/2012
     Route: 042
     Dates: start: 20120104
  4. OXALIPLATIN [Suspect]
     Indication: COLORECTAL CANCER METASTATIC
     Dosage: LAST DOSE PRIOR TO SAE 04/JAN/2012
     Route: 042
     Dates: start: 20120104

REACTIONS (2)
  - SKIN ULCER [None]
  - EXTREMITY NECROSIS [None]
